FAERS Safety Report 20709632 (Version 4)
Quarter: 2023Q1

REPORT INFORMATION
  Report Type: Report from Study
  Country: US (occurrence: US)
  Receive Date: 20220414
  Receipt Date: 20230228
  Transmission Date: 20230418
  Serious: Yes (Hospitalization)
  Sender: FDA-Public Use
  Company Number: US-REGENERON PHARMACEUTICALS, INC.-2022-49518

PATIENT
  Age: 29 Year
  Sex: Male

DRUGS (5)
  1. EVINACUMAB [Suspect]
     Active Substance: EVINACUMAB
     Indication: Pancreatitis acute
     Dosage: 20 MG/KG, Q4W
     Route: 042
     Dates: start: 20220316, end: 20220316
  2. EVINACUMAB [Suspect]
     Active Substance: EVINACUMAB
     Dosage: UNK
  3. ASPIRIN [Concomitant]
     Active Substance: ASPIRIN
     Indication: Prophylaxis
     Dosage: 81 MG, QD
     Route: 048
     Dates: start: 20210602
  4. ATORVASTATIN [Concomitant]
     Active Substance: ATORVASTATIN
     Indication: Hypertriglyceridaemia
     Dosage: 40 MG, QD
     Route: 048
     Dates: start: 20210825
  5. FENOFIBRATE [Concomitant]
     Active Substance: FENOFIBRATE
     Indication: Hypertriglyceridaemia
     Dosage: 160 MG, QD
     Route: 048
     Dates: start: 20210825

REACTIONS (2)
  - Angina pectoris [Recovered/Resolved]
  - Drug hypersensitivity [Recovered/Resolved]

NARRATIVE: CASE EVENT DATE: 20220316
